FAERS Safety Report 14244391 (Version 8)
Quarter: 2018Q2

REPORT INFORMATION
  Report Type: Spontaneous
  Country: CZ (occurrence: CZ)
  Receive Date: 20171201
  Receipt Date: 20180413
  Transmission Date: 20180711
  Serious: Yes (Life-Threatening, Hospitalization, Other)
  Sender: FDA-Public Use
  Company Number: CZ-BAUSCH-BL-2017-032445

PATIENT
  Age: 82 Year
  Sex: Female

DRUGS (57)
  1. DIAZEPAM. [Suspect]
     Active Substance: DIAZEPAM
     Indication: EPILEPSY
  2. DIAZEPAM. [Suspect]
     Active Substance: DIAZEPAM
     Indication: PARTIAL SEIZURES
  3. DIAZEPAM. [Suspect]
     Active Substance: DIAZEPAM
     Indication: GENERALISED TONIC-CLONIC SEIZURE
  4. CEFTRIAXONE SODIUM. [Suspect]
     Active Substance: CEFTRIAXONE SODIUM
     Indication: PNEUMONIA
     Route: 048
  5. PROPOFOL. [Suspect]
     Active Substance: PROPOFOL
     Indication: EPILEPSY
  6. FLUCONAZOLE. [Suspect]
     Active Substance: FLUCONAZOLE
     Indication: PNEUMONIA
     Route: 048
  7. MILURIT [Suspect]
     Active Substance: ALLOPURINOL
     Indication: GOUT
     Route: 048
  8. SODIUM VALPROATE [Suspect]
     Active Substance: VALPROATE SODIUM
     Indication: SEIZURE
     Route: 042
  9. GODASAL [Concomitant]
     Active Substance: ASPIRIN\GLYCINE
     Indication: PRODUCT USED FOR UNKNOWN INDICATION
     Route: 048
  10. GLIQUIDONE [Concomitant]
     Active Substance: GLIQUIDONE
     Indication: PRODUCT USED FOR UNKNOWN INDICATION
  11. LERCANIDIPINE [Concomitant]
     Active Substance: LERCANIDIPINE
     Indication: PRODUCT USED FOR UNKNOWN INDICATION
  12. LEVETIRACETAM. [Suspect]
     Active Substance: LEVETIRACETAM
     Indication: PARTIAL SEIZURES
  13. FENYTOIN [Suspect]
     Active Substance: PHENYTOIN
     Indication: GENERALISED TONIC-CLONIC SEIZURE
  14. VALPROIC ACID. [Suspect]
     Active Substance: VALPROIC ACID
     Indication: SEIZURE
     Route: 042
  15. LOKREN [Concomitant]
     Active Substance: BETAXOLOL HYDROCHLORIDE
     Indication: HYPERTENSION
     Route: 048
  16. EUTHYROX [Concomitant]
     Active Substance: LEVOTHYROXINE SODIUM
     Indication: HYPOTHYROIDISM
     Route: 048
  17. KAPIDIN [Concomitant]
     Active Substance: LERCANIDIPINE HYDROCHLORIDE
     Indication: HYPERTENSION
     Route: 048
  18. DIAZEPAM. [Suspect]
     Active Substance: DIAZEPAM
     Indication: SEIZURE
     Route: 042
  19. FENYTOIN [Suspect]
     Active Substance: PHENYTOIN
     Indication: SEIZURE
  20. FLUCONAZOLE. [Suspect]
     Active Substance: FLUCONAZOLE
     Indication: ANTIFUNGAL TREATMENT
  21. SODIUM VALPROATE [Suspect]
     Active Substance: VALPROATE SODIUM
     Indication: GENERALISED TONIC-CLONIC SEIZURE
  22. VASILIP [Concomitant]
     Active Substance: SIMVASTATIN
     Indication: HYPERCHOLESTEROLAEMIA
     Route: 048
  23. ACETYLSALICYLIC ACID [Concomitant]
     Active Substance: ASPIRIN
     Indication: PRODUCT USED FOR UNKNOWN INDICATION
  24. FENYTOIN [Suspect]
     Active Substance: PHENYTOIN
     Indication: SEIZURE
     Route: 042
  25. LISALGIL [Suspect]
     Active Substance: METAMIZOLE SODIUM
     Indication: PAIN
     Route: 048
  26. MOXONIDINE [Concomitant]
     Active Substance: MOXONIDINE
     Indication: PRODUCT USED FOR UNKNOWN INDICATION
  27. BETAXOLOL. [Concomitant]
     Active Substance: BETAXOLOL
     Indication: PRODUCT USED FOR UNKNOWN INDICATION
  28. LEVETIRACETAM. [Concomitant]
     Active Substance: LEVETIRACETAM
     Indication: PRODUCT USED FOR UNKNOWN INDICATION
     Route: 065
  29. DIAZEPAM. [Suspect]
     Active Substance: DIAZEPAM
     Indication: HYPERTENSION
  30. PARACETAMOL [Suspect]
     Active Substance: ACETAMINOPHEN
     Indication: PAIN
     Route: 048
  31. VALPROIC ACID. [Suspect]
     Active Substance: VALPROIC ACID
     Indication: EPILEPSY
  32. EUTHYROX [Concomitant]
     Active Substance: LEVOTHYROXINE SODIUM
     Indication: HYPERTENSION
  33. CYNT [Concomitant]
     Indication: PRODUCT USED FOR UNKNOWN INDICATION
     Route: 065
  34. AMOXICILLIN. [Concomitant]
     Active Substance: AMOXICILLIN
     Indication: PNEUMONIA
     Route: 065
  35. IBUPROFEN. [Suspect]
     Active Substance: IBUPROFEN
     Indication: ANALGESIC THERAPY
     Route: 065
  36. BUSCO IBUPROFEN [Suspect]
     Active Substance: IBUPROFEN
     Indication: ANALGESIC THERAPY
  37. LEVETIRACETAM. [Suspect]
     Active Substance: LEVETIRACETAM
     Indication: EPILEPSY
  38. FENYTOIN [Suspect]
     Active Substance: PHENYTOIN
     Indication: EPILEPSY
  39. FENYTOIN [Suspect]
     Active Substance: PHENYTOIN
     Indication: PARTIAL SEIZURES
  40. VALPROIC ACID. [Suspect]
     Active Substance: VALPROIC ACID
     Indication: PARTIAL SEIZURES
  41. PROPOFOL. [Suspect]
     Active Substance: PROPOFOL
     Indication: GENERALISED TONIC-CLONIC SEIZURE
  42. SODIUM VALPROATE [Suspect]
     Active Substance: VALPROATE SODIUM
     Indication: PARTIAL SEIZURES
  43. BUSCO IBUPROFEN [Suspect]
     Active Substance: IBUPROFEN
     Indication: PAIN
     Route: 048
  44. FENYTOIN [Suspect]
     Active Substance: PHENYTOIN
     Indication: STATUS EPILEPTICUS
  45. VALPROIC ACID. [Suspect]
     Active Substance: VALPROIC ACID
     Indication: SEIZURE
  46. AMOXICILLIN. [Suspect]
     Active Substance: AMOXICILLIN
     Indication: PNEUMONIA
     Route: 048
  47. GLURENORM [Concomitant]
     Active Substance: GLIQUIDONE
     Indication: PRODUCT USED FOR UNKNOWN INDICATION
     Route: 048
  48. TRITACE [Concomitant]
     Active Substance: RAMIPRIL
     Indication: HYPERTENSION
     Route: 048
  49. GLYCINE. [Concomitant]
     Active Substance: GLYCINE
     Indication: PRODUCT USED FOR UNKNOWN INDICATION
  50. SIMVASTATIN. [Concomitant]
     Active Substance: SIMVASTATIN
     Indication: PRODUCT USED FOR UNKNOWN INDICATION
  51. ALLOPURINOL. [Concomitant]
     Active Substance: ALLOPURINOL
     Indication: PRODUCT USED FOR UNKNOWN INDICATION
  52. PARACETAMOL [Suspect]
     Active Substance: ACETAMINOPHEN
     Indication: ANALGESIC THERAPY
     Route: 065
  53. LEVETIRACETAM. [Suspect]
     Active Substance: LEVETIRACETAM
     Indication: SEIZURE
     Route: 065
  54. LEVETIRACETAM. [Suspect]
     Active Substance: LEVETIRACETAM
     Indication: GENERALISED TONIC-CLONIC SEIZURE
  55. VALPROIC ACID. [Suspect]
     Active Substance: VALPROIC ACID
     Indication: GENERALISED TONIC-CLONIC SEIZURE
  56. PROPOFOL. [Suspect]
     Active Substance: PROPOFOL
     Indication: SEIZURE
     Route: 065
  57. CYNT [Concomitant]
     Indication: HYPERTENSION
     Route: 048

REACTIONS (8)
  - Pneumonia [Recovering/Resolving]
  - Status epilepticus [Recovering/Resolving]
  - Laceration [Recovered/Resolved with Sequelae]
  - Sopor [Recovering/Resolving]
  - Rash [Unknown]
  - Drug ineffective [Unknown]
  - Stevens-Johnson syndrome [Recovered/Resolved with Sequelae]
  - Depressed level of consciousness [Recovering/Resolving]
